FAERS Safety Report 25241896 (Version 1)
Quarter: 2025Q2

REPORT INFORMATION
  Report Type: Spontaneous
  Country: JP (occurrence: JP)
  Receive Date: 20250426
  Receipt Date: 20250426
  Transmission Date: 20250717
  Serious: Yes (Other)
  Sender: MERCK SHARP & DOHME LLC
  Company Number: JP-009507513-2276682

PATIENT
  Age: 45 Year
  Sex: Female

DRUGS (3)
  1. PEMBROLIZUMAB [Suspect]
     Active Substance: PEMBROLIZUMAB
     Indication: Uterine cancer
  2. LENVATINIB [Suspect]
     Active Substance: LENVATINIB
     Indication: Uterine cancer
  3. LENVATINIB [Suspect]
     Active Substance: LENVATINIB
     Indication: Uterine cancer

REACTIONS (5)
  - Tumour pseudoprogression [Unknown]
  - Malaise [Unknown]
  - Hypothyroidism [Unknown]
  - Nausea [Unknown]
  - Blood pressure increased [Unknown]
